FAERS Safety Report 16957141 (Version 2)
Quarter: 2019Q4

REPORT INFORMATION
  Report Type: Spontaneous
  Country: JP (occurrence: JP)
  Receive Date: 20191024
  Receipt Date: 20191025
  Transmission Date: 20200122
  Serious: Yes (Death, Other)
  Sender: FDA-Public Use
  Company Number: JP-JNJFOC-20191018213

PATIENT
  Age: 90 Year
  Sex: Male

DRUGS (1)
  1. ERLEADA [Suspect]
     Active Substance: APALUTAMIDE
     Indication: PROSTATE CANCER
     Route: 048
     Dates: start: 20190708, end: 20190804

REACTIONS (4)
  - Metastases to lung [Unknown]
  - Metastases to bone [Unknown]
  - Death [Fatal]
  - Metastasis [Unknown]

NARRATIVE: CASE EVENT DATE: 20190711
